FAERS Safety Report 5604790-1 (Version None)
Quarter: 2008Q1

REPORT INFORMATION
  Report Type: 
  Country: None (occurrence: None)
  Receive Date: 20080128
  Receipt Date: 20080116
  Transmission Date: 20080703
  Serious: Yes (Other)
  Sender: FDA-Public Use
  Company Number: US-PFIZER INC-2008005498

PATIENT
  Sex: Male
  Weight: 88 kg

DRUGS (7)
  1. VIAGRA [Suspect]
     Indication: ERECTILE DYSFUNCTION
  2. ANTI-DIABETICS [Concomitant]
  3. GLIPIZIDE [Concomitant]
  4. ANTIHYPERTENSIVES [Concomitant]
  5. DIURETICS [Concomitant]
  6. COSOPT [Concomitant]
  7. VITAMINS [Concomitant]

REACTIONS (1)
  - BLINDNESS UNILATERAL [None]
